FAERS Safety Report 9302478 (Version 1)
Quarter: 2013Q2

REPORT INFORMATION
  Report Type: Spontaneous
  Country: AU (occurrence: None)
  Receive Date: 20130517
  Receipt Date: 20130517
  Transmission Date: 20140414
  Serious: Yes (Hospitalization)
  Sender: FDA-Public Use
  Company Number: DSU-2013-03280

PATIENT
  Age: 64 Year
  Sex: Female
  Weight: 68 kg

DRUGS (8)
  1. OLMESARTAN AMLODIPINE [Suspect]
     Indication: PRODUCT USED FOR UNKNOWN INDICATION
     Dosage: 1 DOSE SPECIFIED
  2. MODURETIC [Suspect]
     Indication: PRODUCT USED FOR UNKNOWN INDICATION
     Dosage: 1 DOSE SPECIFIED
     Dates: end: 20121210
  3. ALPRAZOLAM (ALPRAZOLAM) (ALPRAZOLAM) [Concomitant]
  4. BUDESONIDE (BUDESONIDE) (BUDESONIDE) [Concomitant]
  5. FLUTICASONE [Concomitant]
  6. PARACETAMOL [Concomitant]
  7. SALBUTAMOL (SALBUTAMOL) (SALBUTAMOL) [Concomitant]
  8. TIOTROPIUM (TIOTROPIUM) (TIOTROPIUM) [Concomitant]

REACTIONS (3)
  - Hyponatraemia [None]
  - Dehydration [None]
  - Hypovolaemia [None]
